FAERS Safety Report 7411982-8 (Version None)
Quarter: 2011Q2

REPORT INFORMATION
  Report Type: 
  Country: None (occurrence: None)
  Receive Date: 20110413
  Receipt Date: 20110317
  Transmission Date: 20111010
  Serious: Yes (Hospitalization, Other)
  Sender: FDA-Public Use
  Company Number: US-BAYER-200912720NA

PATIENT
  Age: 59 Year
  Sex: Male
  Weight: 101.59 kg

DRUGS (12)
  1. TRASYLOL [Suspect]
     Indication: CARDIAC OPERATION
     Dosage: 50 ML /HR
     Route: 042
     Dates: start: 20040902, end: 20040902
  2. DOPAMINE HCL [Concomitant]
     Dosage: UNK
     Dates: start: 20040902
  3. CONTRAST MEDIA [Concomitant]
     Dosage: UNK
     Dates: start: 20040901
  4. TRASYLOL [Suspect]
     Indication: CORONARY ARTERY BYPASS
  5. CLARITIN [Concomitant]
     Route: 048
  6. DOBUTAMINE HCL [Concomitant]
     Dosage: UNK
     Dates: start: 20040902
  7. ALTACE [Concomitant]
     Indication: PROPHYLAXIS
     Dosage: UNK
     Dates: start: 20040907
  8. NATRECOR [Concomitant]
     Dosage: UNK
     Dates: start: 20040908
  9. ALBUMIN (HUMAN) [Concomitant]
     Dosage: UNK
     Dates: start: 20040904
  10. ALTACE [Concomitant]
  11. NATRECOR [Concomitant]
     Dosage: UNK
     Dates: start: 20040902, end: 20040907
  12. LASIX [Concomitant]
     Dosage: UNK
     Dates: start: 20040904

REACTIONS (6)
  - RENAL FAILURE [None]
  - UNEVALUABLE EVENT [None]
  - RENAL FAILURE ACUTE [None]
  - INJURY [None]
  - RENAL INJURY [None]
  - PAIN [None]
